FAERS Safety Report 26211303 (Version 1)
Quarter: 2025Q4

REPORT INFORMATION
  Report Type: Report from Study
  Country: ZA (occurrence: ZA)
  Receive Date: 20251230
  Receipt Date: 20251230
  Transmission Date: 20260118
  Serious: Yes (Other)
  Sender: ROCHE
  Company Number: ZA-ROCHE-10000266901

PATIENT
  Sex: Female

DRUGS (2)
  1. VABYSMO [Suspect]
     Active Substance: FARICIMAB-SVOA
     Indication: Macular degeneration
     Dosage: LEFT EYE:?1ST INJECTION: 19-APR-2025?2ND INJECTION: 29-MAY-2025?3RD INJECTION: 08-JUL-2025?4TH INJECTION: 09-SEP-2025
     Dates: start: 20250416
  2. AVASTIN [Suspect]
     Active Substance: BEVACIZUMAB
     Indication: Product used for unknown indication

REACTIONS (4)
  - Off label use [Unknown]
  - Optical coherence tomography abnormal [Unknown]
  - Drug ineffective [Unknown]
  - Retinal thickening [Unknown]
